FAERS Safety Report 20898781 (Version 1)
Quarter: 2022Q2

REPORT INFORMATION
  Report Type: Spontaneous
  Country: FR (occurrence: FR)
  Receive Date: 20220601
  Receipt Date: 20220601
  Transmission Date: 20220721
  Serious: Yes (Hospitalization)
  Sender: FDA-Public Use
  Company Number: FR-AFSSAPS-AM20212794

PATIENT
  Age: 58 Year
  Sex: Female
  Weight: 60 kg

DRUGS (17)
  1. DOXYCYCLINE [Suspect]
     Active Substance: DOXYCYCLINE
     Indication: Psoriasis
     Dosage: UNK
     Route: 065
     Dates: end: 20210609
  2. METRONIDAZOLE [Suspect]
     Active Substance: METRONIDAZOLE
     Indication: Septic shock
     Dosage: 1500 MILLIGRAM, ONCE A DAY
     Route: 042
     Dates: start: 20210609, end: 20210611
  3. PANTOPRAZOLE SODIUM [Suspect]
     Active Substance: PANTOPRAZOLE SODIUM
     Indication: Mallory-Weiss syndrome
     Dosage: 80 MILLIGRAM, ONCE A DAY
     Route: 042
     Dates: start: 20210610, end: 20210615
  4. AMIKACIN [Suspect]
     Active Substance: AMIKACIN
     Indication: Septic shock
     Dosage: UNK
     Route: 042
     Dates: start: 20210609, end: 20210609
  5. PREDNISONE [Suspect]
     Active Substance: PREDNISONE
     Indication: Psoriasis
     Dosage: UNK
     Route: 065
     Dates: end: 20210609
  6. ERYTHROMYCIN [Suspect]
     Active Substance: ERYTHROMYCIN
     Indication: Oesophagogastroduodenoscopy
     Dosage: 500 MILLIGRAM, ONCE A DAY
     Route: 042
     Dates: start: 20210610, end: 20210610
  7. HYDROCORTISONE [Suspect]
     Active Substance: HYDROCORTISONE
     Indication: Shock haemorrhagic
     Dosage: 100 MILLIGRAM, ONCE A DAY
     Route: 042
     Dates: start: 20210609, end: 20210611
  8. IOMERON [Suspect]
     Active Substance: IOMEPROL
     Indication: Computerised tomogram
     Dosage: 1 DOSAGE FORM, ONCE A DAY
     Route: 042
     Dates: start: 20210610, end: 20210610
  9. KANOKAD [Suspect]
     Active Substance: COAGULATION FACTOR VII HUMAN\COAGULATION FACTOR X HUMAN\FACTOR IX COMPLEX\PROTHROMBIN
     Indication: Anticoagulation drug level increased
     Dosage: 1500 INTERNATIONAL UNIT, ONCE A DAY
     Route: 042
     Dates: start: 20210610, end: 20210610
  10. NOREPINEPHRINE\NOREPINEPHRINE BITARTRATE [Suspect]
     Active Substance: NOREPINEPHRINE\NOREPINEPHRINE BITARTRATE
     Indication: Shock
     Dosage: UNK
     Route: 042
     Dates: start: 20210609, end: 20210611
  11. NERISONE [Suspect]
     Active Substance: DIFLUCORTOLONE VALERATE
     Indication: Psoriasis
     Dosage: UNK
     Route: 065
     Dates: end: 20210609
  12. PRIMPERAN [Suspect]
     Active Substance: METOCLOPRAMIDE HYDROCHLORIDE
     Indication: Vomiting
     Dosage: 30 MILLIGRAM, ONCE A DAY
     Route: 042
     Dates: start: 20210610, end: 20210612
  13. PHYTONADIONE [Suspect]
     Active Substance: PHYTONADIONE
     Indication: Anticoagulation drug level increased
     Dosage: 10 MILLIGRAM, ONCE A DAY
     Route: 042
     Dates: start: 20210610, end: 20210610
  14. TYGACIL [Suspect]
     Active Substance: TIGECYCLINE
     Indication: Septic shock
     Dosage: 100 MILLIGRAM, ONCE A DAY
     Route: 042
     Dates: start: 20210609, end: 20210611
  15. METHOTREXATE [Concomitant]
     Active Substance: METHOTREXATE
     Indication: Product used for unknown indication
     Dosage: UNK
     Route: 065
  16. FOLIC ACID [Concomitant]
     Active Substance: FOLIC ACID
     Indication: Product used for unknown indication
     Dosage: UNK
     Route: 065
  17. PERINDOPRIL [Concomitant]
     Active Substance: PERINDOPRIL
     Indication: Product used for unknown indication
     Dosage: UNK
     Route: 065

REACTIONS (1)
  - Pustular psoriasis [Recovered/Resolved]

NARRATIVE: CASE EVENT DATE: 20210611
